FAERS Safety Report 9679371 (Version 1)
Quarter: 2013Q4

REPORT INFORMATION
  Report Type: Spontaneous
  Country: US (occurrence: US)
  Receive Date: 20131109
  Receipt Date: 20131109
  Transmission Date: 20140711
  Serious: No
  Sender: FDA-Public Use
  Company Number: US-SANOFI-AVENTIS-2013SA029974

PATIENT
  Age: 48 Year
  Sex: Female

DRUGS (3)
  1. ALLEGRA-D, 24 HR [Suspect]
     Indication: NASAL CONGESTION
     Route: 048
     Dates: start: 20130313, end: 20130314
  2. THYROID THERAPY [Concomitant]
  3. OXYMETAZOLINE [Concomitant]
     Dosage: USED OXYMETOLAZONE NASAL MIST FOR ONE WEEK

REACTIONS (4)
  - Headache [Not Recovered/Not Resolved]
  - Nausea [Not Recovered/Not Resolved]
  - Dizziness [Not Recovered/Not Resolved]
  - Extra dose administered [Unknown]
